FAERS Safety Report 23271301 (Version 7)
Quarter: 2024Q1

REPORT INFORMATION
  Report Type: Spontaneous
  Country: US (occurrence: US)
  Receive Date: 20231207
  Receipt Date: 20240319
  Transmission Date: 20240409
  Serious: No
  Sender: FDA-Public Use
  Company Number: US-002147023-NVSC2023US259478

PATIENT
  Sex: Female

DRUGS (1)
  1. COSENTYX [Suspect]
     Active Substance: SECUKINUMAB
     Indication: Product used for unknown indication
     Dosage: 300 MG, Q2W, 2X 150MG
     Route: 065
     Dates: start: 20230412

REACTIONS (3)
  - Incorrect dose administered [Unknown]
  - Device audio issue [Unknown]
  - Device issue [Unknown]
